FAERS Safety Report 9377463 (Version 1)
Quarter: 2013Q3

REPORT INFORMATION
  Report Type: Spontaneous
  Country: FR (occurrence: FR)
  Receive Date: 20130701
  Receipt Date: 20130701
  Transmission Date: 20140515
  Serious: Yes (Life-Threatening, Hospitalization)
  Sender: FDA-Public Use
  Company Number: FR-SANOFI-AVENTIS-2013SA063826

PATIENT
  Age: 61 Year
  Sex: Female
  Weight: 70 kg

DRUGS (7)
  1. LASILIX [Suspect]
     Indication: OEDEMA
     Route: 048
     Dates: start: 201301
  2. AMBRISENTAN [Suspect]
     Indication: PULMONARY ARTERIAL HYPERTENSION
     Route: 048
     Dates: start: 20130115, end: 20130321
  3. AVLOCARDYL [Concomitant]
     Route: 048
  4. ALDACTONE [Concomitant]
     Route: 048
  5. TOPALGIC [Concomitant]
     Route: 048
  6. IXPRIM [Concomitant]
     Route: 048
  7. LYRICA [Concomitant]
     Route: 048

REACTIONS (6)
  - Aplasia [Not Recovered/Not Resolved]
  - Leukopenia [Not Recovered/Not Resolved]
  - Neutropenia [Not Recovered/Not Resolved]
  - Thrombocytopenia [Not Recovered/Not Resolved]
  - Lymphopenia [Not Recovered/Not Resolved]
  - Anaemia [Not Recovered/Not Resolved]
